FAERS Safety Report 7794879-3 (Version None)
Quarter: 2011Q4

REPORT INFORMATION
  Report Type: 
  Country: None (occurrence: None)
  Receive Date: 20111004
  Receipt Date: 20110926
  Transmission Date: 20120403
  Serious: Yes (Hospitalization)
  Sender: FDA-Public Use
  Company Number: PHHY2011FR71110

PATIENT
  Sex: Male
  Weight: 85 kg

DRUGS (1)
  1. EVEROLIMUS [Suspect]
     Indication: RENAL CELL CARCINOMA
     Dosage: 5 MG, QD
     Dates: start: 20110526

REACTIONS (4)
  - SUBILEUS [None]
  - INTESTINAL OBSTRUCTION [None]
  - ABDOMINAL DISTENSION [None]
  - NAUSEA [None]
